FAERS Safety Report 4556140-X (Version None)
Quarter: 2005Q1

REPORT INFORMATION
  Report Type: 
  Country: None (occurrence: None)
  Receive Date: 20050114
  Receipt Date: 20041230
  Transmission Date: 20050727
  Serious: Yes (Disabling)
  Sender: FDA-Public Use
  Company Number: 2004233458NZ

PATIENT
  Sex: Male

DRUGS (4)
  1. XALATAN [Suspect]
     Indication: GLAUCOMA
     Dosage: INTRAOCULAR
     Route: 031
     Dates: start: 20040501
  2. TIMOLOL MALEATE [Concomitant]
  3. ATORVASTATIN (ATORVASTATIN) [Concomitant]
  4. NICOTINIC ACID [Concomitant]

REACTIONS (1)
  - POLYMYALGIA RHEUMATICA [None]
